FAERS Safety Report 25940003 (Version 1)
Quarter: 2025Q4

REPORT INFORMATION
  Report Type: Spontaneous
  Country: EU (occurrence: EU)
  Receive Date: 20251020
  Receipt Date: 20251020
  Transmission Date: 20260118
  Serious: Yes (Other)
  Sender: ACCORD
  Company Number: None

PATIENT
  Age: 58 Year
  Sex: Male
  Weight: 76 kg

DRUGS (9)
  1. FLUOROURACIL [Suspect]
     Active Substance: FLUOROURACIL
     Indication: Ductal adenocarcinoma of pancreas
     Dosage: 4500MG
     Dates: start: 20250224, end: 20250414
  2. IRINOTECAN [Suspect]
     Active Substance: IRINOTECAN
     Indication: Ductal adenocarcinoma of pancreas
     Dosage: 280 MG/EVERY TWO WEEKS
     Dates: start: 20250224, end: 20250414
  3. OXALIPLATIN [Suspect]
     Active Substance: OXALIPLATIN
     Indication: Ductal adenocarcinoma of pancreas
     Dosage: 160 MG/EVERY TWO WEEKS
     Dates: start: 20250224, end: 20250414
  4. LEUCOVORIN CALCIUM [Suspect]
     Active Substance: LEUCOVORIN CALCIUM
     Indication: Ductal adenocarcinoma of pancreas
     Dosage: 175 MG/EVERY TWO WEEKS
     Dates: start: 20250224, end: 20250414
  5. PALONOSETRON [Concomitant]
     Active Substance: PALONOSETRON
     Indication: Chemotherapy side effect prophylaxis
     Dosage: 250 MCG/IN CONJUNCTION WITH ADMINISTRATION OF FOLFIRINOX CHEMOTHERAPY
     Dates: start: 20250224, end: 20250414
  6. METHYLPREDNISOLONE [Concomitant]
     Active Substance: METHYLPREDNISOLONE
     Indication: Chemotherapy side effect prophylaxis
     Dosage: 125 MCG/IN CONJUNCTION WITH ADMINISTRATION OF FOLFIRINOX CHEMOTHERAPY
     Dates: start: 20250224, end: 20250414
  7. ATROPINE SULFATE [Concomitant]
     Active Substance: ATROPINE SULFATE
     Indication: Chemotherapy side effect prophylaxis
     Dosage: 0.25MG/IN CONJUNCTION WITH ADMINISTRATION OF FOLFIRINOX CHEMOTHERAPY
     Dates: start: 20250224, end: 20250414
  8. CREON [Concomitant]
     Active Substance: PANCRELIPASE AMYLASE\PANCRELIPASE LIPASE\PANCRELIPASE PROTEASE
     Indication: Pancreaticosplenectomy
     Dosage: TABLET 10,000 IU 1 TABLET AT BREAKFAST 2 TABLET AT LUNCH 2 TABLET AT DINNER
     Dates: start: 202505
  9. OMEPRAZOLE [Concomitant]
     Active Substance: OMEPRAZOLE
     Indication: Gastritis erosive
     Dosage: 20MG/DAY

REACTIONS (1)
  - Neuropathy peripheral [Recovered/Resolved]

NARRATIVE: CASE EVENT DATE: 20250310
